FAERS Safety Report 8792744 (Version 2)
Quarter: 2012Q4

REPORT INFORMATION
  Report Type: 
  Country: FR (occurrence: FR)
  Receive Date: 20120918
  Receipt Date: 20120919
  Transmission Date: 20130627
  Serious: Yes (Hospitalization)
  Sender: FDA-Public Use
  Company Number: FR-JNJFOC-20120905387

PATIENT
  Age: 58 Year
  Sex: Male

DRUGS (6)
  1. PREZISTA [Suspect]
     Indication: HIV INFECTION
     Dosage: 2 tablets at 400 mg a day
     Route: 048
     Dates: start: 20120627, end: 20120704
  2. TRIFLUCAN [Suspect]
     Indication: OESOPHAGEAL CANDIDIASIS
     Dosage: 2 tablets a day
     Route: 048
     Dates: start: 20120608, end: 20120630
  3. BACTRIM [Suspect]
     Indication: ANTIFUNGAL PROPHYLAXIS
     Dosage: 2 tablets a day
     Route: 048
     Dates: start: 20120612, end: 20120705
  4. ADIAZINE [Suspect]
     Indication: CEREBRAL TOXOPLASMOSIS
     Dosage: 2 tablets a day
     Route: 048
     Dates: start: 20120618, end: 20120709
  5. COMBIVIR [Suspect]
     Indication: HIV INFECTION
     Dosage: 2 tablets a day
     Route: 048
     Dates: start: 20120627, end: 20120704
  6. NORVIR [Suspect]
     Indication: HIV INFECTION
     Dosage: 2 tablets a day
     Route: 048
     Dates: start: 20120627, end: 20120704

REACTIONS (6)
  - Drug reaction with eosinophilia and systemic symptoms [Recovering/Resolving]
  - Stevens-Johnson syndrome [Recovering/Resolving]
  - Myocarditis [Recovering/Resolving]
  - Blood sodium decreased [Unknown]
  - Haemoglobin decreased [Unknown]
  - Blood creatinine increased [Unknown]
